FAERS Safety Report 7267241-X (Version None)
Quarter: 2011Q1

REPORT INFORMATION
  Report Type: 
  Country: None (occurrence: None)
  Receive Date: 20110201
  Receipt Date: 20101229
  Transmission Date: 20110831
  Serious: Yes (Other)
  Sender: FDA-Public Use
  Company Number: US-BAYER-201014045NA

PATIENT
  Sex: Female
  Weight: 82 kg

DRUGS (22)
  1. IBUPROFEN [Concomitant]
     Indication: PRODUCT USED FOR UNKNOWN INDICATION
     Dosage: UNK
     Dates: start: 20091001
  2. VENTOLIN DS [Concomitant]
     Indication: ASTHMA
     Route: 065
     Dates: start: 20090101
  3. SINGULAIR [Concomitant]
     Dosage: 10 MG, ONCE
     Route: 048
     Dates: start: 20091001
  4. SINGULAIR [Concomitant]
     Dosage: UNK
     Dates: start: 20080201, end: 20091001
  5. OXYCODONE HCL [Concomitant]
     Indication: PAIN
     Dosage: UNK UNK, QID
     Route: 048
  6. PRENATAL [Concomitant]
     Route: 065
     Dates: start: 20090401
  7. UNCODEABLE ^UNCLASSIFIABLE^ [Concomitant]
     Route: 065
     Dates: start: 20060101, end: 20060615
  8. HYDROCORTISONE [Concomitant]
     Route: 065
     Dates: start: 20090501
  9. GUAIFENESIN AND PSEUDOEPHEDRINE HYDROCHLORIDE [Concomitant]
     Route: 065
     Dates: start: 20090101
  10. UNCODEABLE ^UNCLASSIFIABLE^ [Concomitant]
     Indication: PAIN
     Route: 065
  11. YAZ [Suspect]
     Indication: CONTRACEPTION
     Dosage: 1 U, QD
     Route: 048
     Dates: start: 20070201, end: 20090415
  12. SINGULAIR [Concomitant]
     Dosage: 10 MG, QD
     Route: 048
  13. MUCINEX DM [Concomitant]
     Route: 065
     Dates: start: 20090101
  14. UNCODEABLE ^UNCLASSIFIABLE^ [Concomitant]
     Dosage: UNK
     Dates: start: 20090101, end: 20090601
  15. UNCODEABLE ^UNCLASSIFIABLE^ [Concomitant]
     Dosage: UNK
     Dates: start: 20060101
  16. DICLOXACILLIN [Concomitant]
     Route: 065
     Dates: start: 20090501
  17. UNCODEABLE ^UNCLASSIFIABLE^ [Concomitant]
     Indication: HEADACHE
  18. SINGULAIR [Concomitant]
     Indication: ASTHMA
     Dates: start: 20080201, end: 20081215
  19. PROMETHAZINE [Concomitant]
     Route: 065
     Dates: start: 20090501
  20. VITAMINS NOS [Concomitant]
     Route: 065
     Dates: start: 20090401
  21. I.V. SOLUTIONS [Concomitant]
  22. IBUPROFEN [Concomitant]
     Dosage: 800 MG, TID
     Route: 048

REACTIONS (8)
  - ABDOMINAL PAIN UPPER [None]
  - NAUSEA [None]
  - VOMITING [None]
  - ABDOMINAL PAIN [None]
  - DIARRHOEA [None]
  - CHOLELITHIASIS [None]
  - PREGNANCY ON ORAL CONTRACEPTIVE [None]
  - CONSTIPATION [None]
